FAERS Safety Report 12111086 (Version 1)
Quarter: 2016Q1

REPORT INFORMATION
  Report Type: Spontaneous
  Country: CZ (occurrence: CZ)
  Receive Date: 20160224
  Receipt Date: 20160224
  Transmission Date: 20160526
  Serious: Yes (Other)
  Sender: FDA-Public Use
  Company Number: CZ-FRESENIUS KABI-FK201600945

PATIENT
  Age: 40 Year
  Sex: Male

DRUGS (3)
  1. CLADRIBINE (MANUFACTURER UNKNOWN) [Suspect]
     Active Substance: CLADRIBINE
     Indication: LANGERHANS^ CELL HISTIOCYTOSIS
     Route: 065
  2. CYCLOPHOSPHAMIDE. [Concomitant]
     Active Substance: CYCLOPHOSPHAMIDE
  3. DEXAMETHASONE. [Concomitant]
     Active Substance: DEXAMETHASONE

REACTIONS (1)
  - Tonsillitis [Unknown]
